FAERS Safety Report 9435292 (Version 1)
Quarter: 2013Q3

REPORT INFORMATION
  Report Type: Spontaneous
  Country: US (occurrence: US)
  Receive Date: 20130801
  Receipt Date: 20130801
  Transmission Date: 20140515
  Serious: Yes (Other)
  Sender: FDA-Public Use
  Company Number: US-TARO PHARMACEUTICALS U.S.A., INC-2013SUN01518

PATIENT
  Age: 48 Year
  Sex: Male

DRUGS (6)
  1. WARFARIN [Suspect]
     Indication: DEEP VEIN THROMBOSIS
     Dosage: UNK
     Route: 065
  2. IFOSFAMIDE [Suspect]
     Indication: SYNOVIAL SARCOMA
     Dosage: UNK
     Route: 065
  3. IFOSFAMIDE [Suspect]
     Indication: METASTASES TO LUNG
     Dosage: 2 G/M2, UNK
     Route: 065
  4. IFOSFAMIDE [Suspect]
     Dosage: 3 G/M2, UNK
     Route: 065
  5. IFOSFAMIDE [Suspect]
     Dosage: 3.6 G/M2, UNK
     Route: 065
  6. IFOSFAMIDE [Suspect]
     Dosage: 4 G/M2,
     Route: 065

REACTIONS (2)
  - Thrombocytopenia [Unknown]
  - Epistaxis [Unknown]
